FAERS Safety Report 17637614 (Version 2)
Quarter: 2020Q4

REPORT INFORMATION
  Report Type: Spontaneous
  Country: HU (occurrence: HU)
  Receive Date: 20200407
  Receipt Date: 20201021
  Transmission Date: 20210113
  Serious: Yes (Death)
  Sender: FDA-Public Use
  Company Number: HU-PFIZER INC-2020140710

PATIENT
  Age: 52 Year
  Sex: Male

DRUGS (1)
  1. LORVIQUA [Suspect]
     Active Substance: LORLATINIB
     Dosage: UNK
     Dates: start: 20200127

REACTIONS (3)
  - Sepsis [Fatal]
  - Cardiac tamponade [Fatal]
  - Pneumonia [Fatal]

NARRATIVE: CASE EVENT DATE: 2020
